FAERS Safety Report 8547787-4 (Version None)
Quarter: 2012Q3

REPORT INFORMATION
  Report Type: 
  Country: None (occurrence: None)
  Receive Date: 20120727
  Receipt Date: 20120111
  Transmission Date: 20120928
  Serious: Yes (Other)
  Sender: FDA-Public Use
  Company Number: US-ASTRAZENECA-2012SE02474

PATIENT
  Age: 42 Year
  Sex: Female

DRUGS (1)
  1. SEROQUEL XR [Suspect]
     Indication: CONVULSION
     Route: 048

REACTIONS (3)
  - DRUG PRESCRIBING ERROR [None]
  - CONVULSION [None]
  - DRUG DOSE OMISSION [None]
